FAERS Safety Report 21095589 (Version 1)
Quarter: 2022Q3

REPORT INFORMATION
  Report Type: Spontaneous
  Country: AU (occurrence: AU)
  Receive Date: 20220718
  Receipt Date: 20220718
  Transmission Date: 20221026
  Serious: Yes (Other)
  Sender: FDA-Public Use
  Company Number: AU-TEVA-2022-AU-2044801

PATIENT
  Sex: Male
  Weight: 120 kg

DRUGS (2)
  1. IMATINIB [Suspect]
     Active Substance: IMATINIB
     Indication: Chronic myeloid leukaemia
     Dosage: 400 MILLIGRAM DAILY; DOSAGE AND FORM STRENGTH: UNKNOWN
     Route: 048
     Dates: start: 202109, end: 202206
  2. ONDANSETRON [Concomitant]
     Active Substance: ONDANSETRON
     Indication: Product used for unknown indication
     Dosage: TAKEN DAILY PRIOR TO IMATINIB DOSE

REACTIONS (4)
  - Vomiting [Recovered/Resolved]
  - Fatigue [Recovering/Resolving]
  - Drug intolerance [Unknown]
  - Philadelphia chromosome positive [Unknown]
